FAERS Safety Report 17041417 (Version 1)
Quarter: 2019Q4

REPORT INFORMATION
  Report Type: Spontaneous
  Country: JP (occurrence: JP)
  Receive Date: 20191118
  Receipt Date: 20191118
  Transmission Date: 20200122
  Serious: Yes (Other)
  Sender: FDA-Public Use
  Company Number: JP-BRISTOL-MYERS SQUIBB COMPANY-BMS-2019-109927

PATIENT
  Age: 75 Year
  Sex: Male

DRUGS (1)
  1. OPDIVO [Suspect]
     Active Substance: NIVOLUMAB
     Indication: PLEURAL MESOTHELIOMA MALIGNANT
     Dosage: FOR UNRESECTABLE, ADVANCED OR RECURRENT MALIGNANT PLEURAL MESOTHELIOMA AGGRAVATED AFTER ANTICANCER C
     Route: 041

REACTIONS (2)
  - Nephrotic syndrome [Unknown]
  - Intentional product use issue [Unknown]
